FAERS Safety Report 5569873-3 (Version None)
Quarter: 2007Q4

REPORT INFORMATION
  Report Type: 
  Country: None (occurrence: None)
  Receive Date: 20071217
  Receipt Date: 20071206
  Transmission Date: 20080405
  Serious: Yes (Death)
  Sender: FDA-Public Use
  Company Number: 2007-04067

PATIENT
  Age: 83 Year
  Sex: Female

DRUGS (2)
  1. VELCADE [Suspect]
     Indication: MULTIPLE MYELOMA
  2. REVLIMID [Suspect]
     Indication: MULTIPLE MYELOMA
     Dosage: 10.00 MG, ORAL
     Route: 048
     Dates: start: 20070604, end: 20070614

REACTIONS (6)
  - BACTERAEMIA [None]
  - MALIGNANT NEOPLASM PROGRESSION [None]
  - MULTIPLE MYELOMA [None]
  - NEUTROPENIA [None]
  - SEPSIS [None]
  - THROMBOCYTOPENIA [None]
